FAERS Safety Report 9385735 (Version 1)
Quarter: 2013Q3

REPORT INFORMATION
  Report Type: Spontaneous
  Country: US (occurrence: US)
  Receive Date: 20130705
  Receipt Date: 20130705
  Transmission Date: 20140515
  Serious: No
  Sender: FDA-Public Use
  Company Number: US-ASTRAZENECA-2013SE49315

PATIENT
  Age: 80 Year
  Sex: Female

DRUGS (3)
  1. SYMBICORT PMDI [Suspect]
     Indication: ASTHMA
     Dosage: 160 MCG/4.5 MCG, PRN
     Route: 055
     Dates: end: 201301
  2. SYMBICORT PMDI [Suspect]
     Indication: ASTHMA
     Dosage: 160 MCG/4.5 MCG TWO PUFFS, BID
     Route: 055
     Dates: start: 201301
  3. CELEBREX [Concomitant]
     Indication: ARTHRITIS
     Dates: end: 201305

REACTIONS (2)
  - Asthma [Unknown]
  - Off label use [Unknown]
